FAERS Safety Report 23866212 (Version 12)
Quarter: 2024Q4

REPORT INFORMATION
  Report Type: Spontaneous
  Country: CA (occurrence: CA)
  Receive Date: 20240517
  Receipt Date: 20241227
  Transmission Date: 20250115
  Serious: Yes (Other)
  Sender: CELLTRION
  Company Number: CA-PFIZER INC-202400003699

PATIENT

DRUGS (30)
  1. INFLECTRA [Suspect]
     Active Substance: INFLIXIMAB-DYYB
     Indication: Crohn^s disease
     Dosage: 10 MG/KG, Q 0, 2, 4 WEEKS, THEN EVERY 4 WEEKS
     Route: 042
     Dates: start: 20191216, end: 20200508
  2. INFLECTRA [Suspect]
     Active Substance: INFLIXIMAB-DYYB
     Dosage: 15 MG/KG, EVERY 3 WEEKS
     Route: 042
     Dates: start: 20200529, end: 20220304
  3. INFLECTRA [Suspect]
     Active Substance: INFLIXIMAB-DYYB
     Dosage: 1000 MG, ROUNDED UP, EVERY 3 WEEKS (15 MG/KG ROUNDED UP)
     Route: 042
     Dates: start: 20220325, end: 20230111
  4. INFLECTRA [Suspect]
     Active Substance: INFLIXIMAB-DYYB
     Dosage: 1100 MG, EVERY 3 WEEKS
     Route: 042
     Dates: start: 20230201
  5. INFLECTRA [Suspect]
     Active Substance: INFLIXIMAB-DYYB
     Dosage: 1100 MG, EVERY 3 WEEKS
     Route: 042
     Dates: start: 20231213
  6. INFLECTRA [Suspect]
     Active Substance: INFLIXIMAB-DYYB
     Dosage: 1100 MG, AFTER 5 WEEKS (PRESCRIBED EVERY 3 WEEKS)
     Route: 042
     Dates: start: 20240117
  7. INFLECTRA [Suspect]
     Active Substance: INFLIXIMAB-DYYB
     Dosage: 1100 MG, AFTER 6 WEEKS AND 1 DAY (PRESCRIBED EVERY 3 WEEKS)
     Route: 042
     Dates: start: 20240229
  8. INFLECTRA [Suspect]
     Active Substance: INFLIXIMAB-DYYB
     Dosage: 1100 MG, AFTER 6 WEEKS AND 5 DAYS (PRESCRIBED EVERY 3 WEEKS)
     Route: 042
     Dates: start: 20240416
  9. INFLECTRA [Suspect]
     Active Substance: INFLIXIMAB-DYYB
     Dosage: 1100 MG, EVERY 3 WEEKS
     Route: 042
     Dates: start: 20240509
  10. INFLECTRA [Suspect]
     Active Substance: INFLIXIMAB-DYYB
     Dosage: 1100 MG, AFTER 3 WEEKS
     Route: 042
     Dates: start: 20240605
  11. INFLECTRA [Suspect]
     Active Substance: INFLIXIMAB-DYYB
     Dosage: 1100 MG, AFTER 3 WEEKS AND 1 DAY (PRESCRIBED EVERY 3 WEEKS)
     Route: 042
     Dates: start: 20240627
  12. INFLECTRA [Suspect]
     Active Substance: INFLIXIMAB-DYYB
     Dosage: 1100 MG, EVERY 3 WEEKS (BUT PATIENT RECIEVED IT AFTER 4 WEEKS)
     Route: 042
     Dates: start: 20240725
  13. INFLECTRA [Suspect]
     Active Substance: INFLIXIMAB-DYYB
     Dosage: 1100 MG, EVERY 3 WEEKS
     Route: 042
     Dates: start: 20240815
  14. INFLECTRA [Suspect]
     Active Substance: INFLIXIMAB-DYYB
     Dosage: 1100 MG, EVERY 3 WEEKS
     Route: 042
     Dates: start: 20240905
  15. INFLECTRA [Suspect]
     Active Substance: INFLIXIMAB-DYYB
     Dosage: 1100 MG, AFTER 2 WEEKS AND 6 DAYS (PRESCRIBED EVERY 3 WEEKS)
     Route: 042
     Dates: start: 20240925
  16. INFLECTRA [Suspect]
     Active Substance: INFLIXIMAB-DYYB
     Dosage: 1100 MG, EVERY 3 WEEKS
     Route: 042
     Dates: start: 20241016
  17. INFLECTRA [Suspect]
     Active Substance: INFLIXIMAB-DYYB
     Dosage: 1100 MG, EVERY 3 WEEKS
     Route: 042
     Dates: start: 20241106
  18. INFLECTRA [Suspect]
     Active Substance: INFLIXIMAB-DYYB
     Dosage: 1100 MG, EVERY 3 WEEKS
     Route: 042
     Dates: start: 20241127
  19. INFLECTRA [Suspect]
     Active Substance: INFLIXIMAB-DYYB
     Dosage: 1100 MG, 2 WEEKS 6 DAYS (1100, EVERY 3 WEEKS)
     Route: 042
     Dates: start: 20241217
  20. ALESSE 28 [Concomitant]
     Active Substance: ETHINYL ESTRADIOL\LEVONORGESTREL
     Indication: Contraception
     Dosage: 1 DF, UNKNOWN DOSE AND FREQUENCY
     Route: 048
  21. AMLODIPINE [Concomitant]
     Active Substance: AMLODIPINE BESYLATE
     Indication: Hypertension
     Dosage: 1 DF, DOSAGE INFORMATION NOT AVAILABLE
     Route: 065
  22. CYMBALTA [Concomitant]
     Active Substance: DULOXETINE HYDROCHLORIDE
     Indication: Pain
     Dosage: 30 MG, 1X/DAY
     Route: 048
  23. FOLIC ACID [Concomitant]
     Active Substance: FOLIC ACID
     Dosage: 1 DF, UNKNOWN DOSE AND FREQUENCY
     Route: 065
  24. GABAPENTIN [Concomitant]
     Active Substance: GABAPENTIN
     Indication: Pain
     Dosage: 600 MG, 2X/DAY
     Route: 048
     Dates: start: 201903
  25. GABAPENTIN [Concomitant]
     Active Substance: GABAPENTIN
     Dosage: 400 MG, 1X/DAY
     Route: 048
     Dates: start: 201903
  26. HYDROMORPHONE [Concomitant]
     Active Substance: HYDROMORPHONE
     Indication: Pain
     Dosage: 2 MG, EVERY 4 HOURS, MAX. 8 PILLS DAILY
     Route: 048
     Dates: start: 201902
  27. METHOTREXATE [Concomitant]
     Active Substance: METHOTREXATE
     Dosage: 1 DF, UNKNOWN DOSE AND FREQUENCY
     Route: 058
     Dates: start: 2004, end: 2008
  28. METHOTREXATE [Concomitant]
     Active Substance: METHOTREXATE
     Dosage: 25 MG, WEEKLY
     Route: 048
  29. NABILONE [Concomitant]
     Active Substance: NABILONE
     Indication: Pain
     Dosage: 1 MG, 2X/DAY
     Route: 048
     Dates: start: 201903
  30. CHOLECALCIFEROL [Concomitant]
     Active Substance: CHOLECALCIFEROL
     Dosage: 10000 IU (EVERY OTHER DAY), ALTERNATE DAY (1DF)
     Route: 048

REACTIONS (15)
  - Pyoderma gangrenosum [Not Recovered/Not Resolved]
  - Condition aggravated [Recovering/Resolving]
  - Aphthous ulcer [Not Recovered/Not Resolved]
  - Arthralgia [Not Recovered/Not Resolved]
  - Abdominal pain [Unknown]
  - Chest pain [Recovering/Resolving]
  - Back pain [Recovering/Resolving]
  - Dyspnoea [Recovering/Resolving]
  - Rhinovirus infection [Unknown]
  - Fatigue [Not Recovered/Not Resolved]
  - Oropharyngeal pain [Not Recovered/Not Resolved]
  - Malaise [Not Recovered/Not Resolved]
  - Anal fissure [Recovered/Resolved]
  - Off label use [Unknown]
  - Inappropriate schedule of product administration [Unknown]

NARRATIVE: CASE EVENT DATE: 20240101
